FAERS Safety Report 7822992-0 (Version None)
Quarter: 2011Q4

REPORT INFORMATION
  Report Type: 
  Country: None (occurrence: None)
  Receive Date: 20111018
  Receipt Date: 20110517
  Transmission Date: 20120403
  Serious: No
  Sender: FDA-Public Use
  Company Number: US-ASTRAZENECA-2011SE29995

PATIENT
  Sex: Male

DRUGS (1)
  1. SYMBICORT [Suspect]
     Indication: LUNG NEOPLASM
     Dosage: BID
     Route: 055
     Dates: start: 20110201

REACTIONS (1)
  - DYSGEUSIA [None]
